FAERS Safety Report 8432648-1 (Version None)
Quarter: 2012Q2

REPORT INFORMATION
  Report Type: 
  Country: None (occurrence: None)
  Receive Date: 20120613
  Receipt Date: 20120607
  Transmission Date: 20120825
  Serious: Yes (Life-Threatening, Disabling)
  Sender: FDA-Public Use
  Company Number: CH-BAYER-200923270GPV

PATIENT
  Sex: Female

DRUGS (2)
  1. YAZ [Suspect]
  2. YASMIN [Suspect]
     Route: 048

REACTIONS (4)
  - INTRACRANIAL VENOUS SINUS THROMBOSIS [None]
  - PULMONARY EMBOLISM [None]
  - UNEVALUABLE EVENT [None]
  - VENOUS THROMBOSIS LIMB [None]
